FAERS Safety Report 4978388-2 (Version None)
Quarter: 2006Q2

REPORT INFORMATION
  Report Type: 
  Country: None (occurrence: None)
  Receive Date: 20060417
  Receipt Date: 20060405
  Transmission Date: 20061013
  Serious: Yes (Death)
  Sender: FDA-Public Use
  Company Number: HQWYE444720JAN06

PATIENT
  Age: 14 Year
  Sex: Female

DRUGS (5)
  1. EFFEXOR XR [Suspect]
     Indication: DEPRESSION
     Dosage: 75 MG 1 X PER 1 DAY ORAL; SEE IMAGE
     Route: 048
     Dates: start: 20040812, end: 20040924
  2. EFFEXOR XR [Suspect]
     Indication: DEPRESSION
     Dosage: 75 MG 1 X PER 1 DAY ORAL; SEE IMAGE
     Route: 048
     Dates: start: 20040925, end: 20041001
  3. ZOLPIDEM TARTRATE [Concomitant]
  4. ENDEP [Concomitant]
  5. DIANE-35 ED (CYPROTERONE ACETATE/ETHINYLESTRADIOL) [Concomitant]

REACTIONS (11)
  - ABNORMAL BEHAVIOUR [None]
  - AGGRESSION [None]
  - ANGER [None]
  - COMPLETED SUICIDE [None]
  - CONTUSION [None]
  - DEPRESSION [None]
  - INJURY ASPHYXIATION [None]
  - INSOMNIA [None]
  - JOINT INJURY [None]
  - SELF INJURIOUS BEHAVIOUR [None]
  - VERBALLY ABUSED [None]
